FAERS Safety Report 4708560-8 (Version None)
Quarter: 2005Q3

REPORT INFORMATION
  Report Type: 
  Country: None (occurrence: None)
  Receive Date: 20050706
  Receipt Date: 20050624
  Transmission Date: 20060218
  Serious: Yes (Other)
  Sender: FDA-Public Use
  Company Number: 2005093267

PATIENT
  Age: 50 Year
  Sex: Female
  Weight: 74.8435 kg

DRUGS (2)
  1. NIFEDIPINE [Suspect]
     Indication: HYPERTENSION
     Dosage: 30 MG (30 MG, DAILY), ORAL
     Route: 048
     Dates: start: 20050601, end: 20050623
  2. XANAX [Concomitant]

REACTIONS (6)
  - BLOOD PRESSURE DECREASED [None]
  - CARDIAC FLUTTER [None]
  - DRUG DISPENSING ERROR [None]
  - HEADACHE [None]
  - PAIN IN EXTREMITY [None]
  - SENSATION OF PRESSURE [None]
